FAERS Safety Report 11443502 (Version 2)
Quarter: 2015Q3

REPORT INFORMATION
  Report Type: Spontaneous
  Country: US (occurrence: US)
  Receive Date: 20150901
  Receipt Date: 20150916
  Transmission Date: 20151125
  Serious: Yes (Disabling, Other)
  Sender: FDA-Public Use
  Company Number: US-AMGEN-USASP2015088083

PATIENT
  Age: 59 Year
  Sex: Female
  Weight: 85.71 kg

DRUGS (16)
  1. LISINOPRIL. [Concomitant]
     Active Substance: LISINOPRIL
     Dosage: UNK
  2. CELEBREX [Concomitant]
     Active Substance: CELECOXIB
     Dosage: 200 MG, QD
  3. OXYCODONE [Concomitant]
     Active Substance: OXYCODONE
     Dosage: UNK
  4. ENBREL [Suspect]
     Active Substance: ETANERCEPT
     Indication: RHEUMATOID ARTHRITIS
     Dosage: 50 MG, QWK
     Route: 058
     Dates: start: 2001
  5. IRON [Concomitant]
     Active Substance: IRON
     Dosage: UNK
  6. OMEPRAZOLE. [Concomitant]
     Active Substance: OMEPRAZOLE
     Dosage: UNK
  7. LASIX [Concomitant]
     Active Substance: FUROSEMIDE
     Dosage: UNK
  8. ALPRAZOLAM. [Concomitant]
     Active Substance: ALPRAZOLAM
     Dosage: UNK
  9. PROPRANOLOL [Concomitant]
     Active Substance: PROPRANOLOL\PROPRANOLOL HYDROCHLORIDE
     Dosage: UNK
  10. GLUCOSAMINE + CHONDROITIN          /01430901/ [Concomitant]
     Dosage: UNK
  11. XANAX [Concomitant]
     Active Substance: ALPRAZOLAM
     Dosage: UNK
  12. ALDACTONE [Concomitant]
     Active Substance: SPIRONOLACTONE
     Dosage: UNK
  13. ASA [Concomitant]
     Active Substance: ASPIRIN
     Dosage: UNK
  14. METHOTREXATE [Concomitant]
     Active Substance: METHOTREXATE
     Dosage: SIX TABLETS ONCE A WEEK
  15. CALCIUM [Concomitant]
     Active Substance: CALCIUM
     Dosage: UNK
  16. FOLIC ACID. [Concomitant]
     Active Substance: FOLIC ACID
     Dosage: 1 MG, QD

REACTIONS (19)
  - Road traffic accident [Unknown]
  - Cardiac murmur [Unknown]
  - Back pain [Unknown]
  - Joint crepitation [Unknown]
  - Muscle mass [Unknown]
  - Gait disturbance [Unknown]
  - Oedema peripheral [Unknown]
  - Foot deformity [Unknown]
  - Gastric ulcer helicobacter [Unknown]
  - Knee arthroplasty [Unknown]
  - Rheumatoid arthritis [Unknown]
  - Peripheral sensorimotor neuropathy [Unknown]
  - Purpura senile [Unknown]
  - Arthralgia [Unknown]
  - Exercise tolerance decreased [Unknown]
  - Spinal column injury [Unknown]
  - Sciatica [Unknown]
  - Joint range of motion decreased [Unknown]
  - Skin discolouration [Unknown]

NARRATIVE: CASE EVENT DATE: 2002
